FAERS Safety Report 7794622-8 (Version None)
Quarter: 2011Q4

REPORT INFORMATION
  Report Type: 
  Country: None (occurrence: None)
  Receive Date: 20111004
  Receipt Date: 20110926
  Transmission Date: 20120403
  Serious: Yes (Other)
  Sender: FDA-Public Use
  Company Number: BR-SANOFI-AVENTIS-2011SA063519

PATIENT
  Age: 67 Year
  Sex: Female
  Weight: 59 kg

DRUGS (6)
  1. HUMALOG [Concomitant]
     Route: 058
  2. LANTUS [Suspect]
     Route: 058
  3. AUTOPEN 24 [Concomitant]
     Indication: DEVICE THERAPY
  4. OS-CAL D [Concomitant]
     Route: 048
  5. HERBAL PREPARATION [Concomitant]
     Indication: HEPATITIS
     Route: 048
  6. LOSARTAN POTASSIUM [Concomitant]
     Indication: BLOOD PRESSURE
     Route: 048

REACTIONS (1)
  - HEPATITIS A [None]
